FAERS Safety Report 17190220 (Version 1)
Quarter: 2019Q4

REPORT INFORMATION
  Report Type: Spontaneous
  Country: DE (occurrence: DE)
  Receive Date: 20191223
  Receipt Date: 20191223
  Transmission Date: 20200122
  Serious: Yes (Other)
  Sender: FDA-Public Use
  Company Number: DE-TEVA-2019-DE-1154700

PATIENT
  Age: 26 Year
  Sex: Female
  Weight: 66 kg

DRUGS (1)
  1. COPAXONE [Suspect]
     Active Substance: GLATIRAMER ACETATE
     Indication: MULTIPLE SCLEROSIS
     Dosage: DAILY DOSE: 120 MG MILLGRAM(S) EVERY WEEKS 3 SEPARATED DOSES
     Dates: end: 20191025

REACTIONS (2)
  - Hepatic necrosis [Not Recovered/Not Resolved]
  - Transaminases increased [Not Recovered/Not Resolved]
